FAERS Safety Report 14564799 (Version 1)
Quarter: 2018Q1

REPORT INFORMATION
  Report Type: Report from Study
  Country: None (occurrence: CO)
  Receive Date: 20180223
  Receipt Date: 20180223
  Transmission Date: 20180509
  Serious: Yes (Life-Threatening, Other)
  Sender: FDA-Public Use
  Company Number: CO-ABBVIE-18K-036-2265391-00

PATIENT
  Sex: Female

DRUGS (1)
  1. HUMIRA [Suspect]
     Active Substance: ADALIMUMAB
     Indication: PSORIASIS
     Route: 058
     Dates: start: 20100211, end: 20180130

REACTIONS (7)
  - Macular degeneration [Recovering/Resolving]
  - Fungal rhinitis [Recovering/Resolving]
  - Myocardial infarction [Recovering/Resolving]
  - Post procedural myocardial infarction [Recovering/Resolving]
  - Intracranial aneurysm [Recovering/Resolving]
  - Retinal degeneration [Recovering/Resolving]
  - Sinusitis [Recovering/Resolving]

NARRATIVE: CASE EVENT DATE: 2012
